FAERS Safety Report 7333346-8 (Version None)
Quarter: 2011Q1

REPORT INFORMATION
  Report Type: 
  Country: None (occurrence: None)
  Receive Date: 20110304
  Receipt Date: 20110301
  Transmission Date: 20110831
  Serious: Yes (Hospitalization, Other)
  Sender: FDA-Public Use
  Company Number: US-PFIZER INC-2011004321

PATIENT
  Sex: Male
  Weight: 70.295 kg

DRUGS (10)
  1. LYRICA [Suspect]
     Indication: NERVE COMPRESSION
     Dosage: 75 MG, 1X/DAY
     Route: 048
     Dates: start: 20100401
  2. HYDROCHLOROTHIAZIDE [Concomitant]
     Indication: HYPERTENSION
     Dosage: 25 MG, 1X/DAY
     Route: 048
  3. DARVOCET-N 100 [Concomitant]
     Indication: BACK PAIN
     Dosage: 100/650MG AS NEEDED
     Route: 048
  4. FLEXERIL [Concomitant]
     Indication: MUSCLE RELAXANT THERAPY
     Dosage: 200 MG, 2X/DAY
     Route: 048
  5. CLINORIL [Concomitant]
     Indication: ANTIINFLAMMATORY THERAPY
     Dosage: 10 MG, 3X/DAY
     Route: 048
  6. NEURONTIN [Suspect]
     Indication: NERVE COMPRESSION
     Dosage: UNK
     Route: 048
     Dates: start: 20100101, end: 20100101
  7. LYRICA [Suspect]
     Dosage: 75 MG, 2X/DAY
     Route: 048
     Dates: end: 20100501
  8. LYRICA [Suspect]
     Dosage: 75 MG, 2X/DAY,
     Route: 048
     Dates: start: 20100325, end: 20100415
  9. LOVASTATIN [Concomitant]
     Indication: BLOOD CHOLESTEROL INCREASED
     Dosage: 20 MG, 1X/DAY
     Route: 048
  10. LOPRESSOR [Concomitant]
     Indication: HYPERTENSION
     Dosage: 25 MG, 2X/DAY
     Route: 048

REACTIONS (19)
  - VISION BLURRED [None]
  - SUICIDAL IDEATION [None]
  - SPEECH DISORDER [None]
  - DRUG INEFFECTIVE [None]
  - SKIN DISORDER [None]
  - FRUSTRATION [None]
  - ANXIETY [None]
  - IRRITABILITY [None]
  - DISORIENTATION [None]
  - HEART RATE INCREASED [None]
  - DYSPNOEA [None]
  - CHEST PAIN [None]
  - BLOOD PRESSURE INCREASED [None]
  - AMNESIA [None]
  - DYSPHEMIA [None]
  - WEIGHT DECREASED [None]
  - DISTURBANCE IN ATTENTION [None]
  - MUSCLE SPASMS [None]
  - INSOMNIA [None]
